FAERS Safety Report 12309109 (Version 1)
Quarter: 2016Q2

REPORT INFORMATION
  Report Type: Spontaneous
  Country: US (occurrence: None)
  Receive Date: 20160426
  Receipt Date: 20160426
  Transmission Date: 20160815
  Serious: Yes (Hospitalization, Other)
  Sender: FDA-Public Use
  Company Number: None

PATIENT
  Age: 73 Year
  Sex: Female
  Weight: 90.27 kg

DRUGS (1)
  1. MONUROL [Suspect]
     Active Substance: FOSFOMYCIN TROMETHAMINE
     Indication: BACTERIAL TEST POSITIVE
     Route: 048
     Dates: start: 20160414, end: 20160418

REACTIONS (1)
  - Hallucinations, mixed [None]

NARRATIVE: CASE EVENT DATE: 20160415
